FAERS Safety Report 6211409-8 (Version None)
Quarter: 2009Q2

REPORT INFORMATION
  Report Type: 
  Country: None (occurrence: None)
  Receive Date: 20090602
  Receipt Date: 20090522
  Transmission Date: 20091009
  Serious: No
  Sender: FDA-Public Use
  Company Number: US-ELI_LILLY_AND_COMPANY-US200905004752

PATIENT
  Age: 6 Year
  Sex: Male
  Weight: 31.75 kg

DRUGS (2)
  1. STRATTERA [Suspect]
     Indication: ANGER
     Dosage: 18 MG, UNKNOWN
     Route: 065
     Dates: start: 20090401
  2. STRATTERA [Suspect]
     Dosage: 40 MG, UNKNOWN
     Route: 065

REACTIONS (4)
  - ABDOMINAL DISCOMFORT [None]
  - CRYING [None]
  - EMOTIONAL DISORDER [None]
  - GASTROINTESTINAL PAIN [None]
